FAERS Safety Report 8834625 (Version 2)
Quarter: 2012Q4

REPORT INFORMATION
  Report Type: Report from Study
  Country: CA (occurrence: CA)
  Receive Date: 20121010
  Receipt Date: 20121112
  Transmission Date: 20130627
  Serious: Yes (Hospitalization)
  Sender: FDA-Public Use
  Company Number: CA-ROCHE-1141879

PATIENT
  Age: 71 Year
  Sex: Female
  Weight: 44.5 kg

DRUGS (4)
  1. TOCILIZUMAB [Suspect]
     Indication: RHEUMATOID ARTHRITIS
     Route: 042
     Dates: start: 20110823
  2. SULFASALAZINE [Concomitant]
  3. ACLASTA [Concomitant]
  4. NIFEDIPINE [Concomitant]

REACTIONS (4)
  - Pain in extremity [Recovered/Resolved]
  - Fluid retention [Recovered/Resolved]
  - Oedema peripheral [Recovered/Resolved]
  - Vomiting [Recovered/Resolved]
